FAERS Safety Report 6167065-0 (Version None)
Quarter: 2009Q2

REPORT INFORMATION
  Report Type: 
  Country: None (occurrence: None)
  Receive Date: 20090423
  Receipt Date: 20090423
  Transmission Date: 20091009
  Serious: Yes (Hospitalization)
  Sender: FDA-Public Use
  Company Number: None

PATIENT
  Age: 51 Year
  Sex: Male

DRUGS (5)
  1. LISINOPRIL [Suspect]
     Indication: HYPERTENSION
     Dosage: 20MG DAILY PO
     Route: 048
  2. LEVOFLOXACIN [Suspect]
     Indication: PYREXIA
     Dosage: 750MG DAILY PO  (DURATION: SEVERAL DAYS)
     Route: 048
  3. PLAVIX [Concomitant]
  4. GLYBURIDE [Concomitant]
  5. VERAPAMIL [Concomitant]

REACTIONS (1)
  - ANGIOEDEMA [None]
